FAERS Safety Report 6945396-1 (Version None)
Quarter: 2010Q3

REPORT INFORMATION
  Report Type: 
  Country: None (occurrence: None)
  Receive Date: 20100827
  Receipt Date: 20100824
  Transmission Date: 20110219
  Serious: Yes (Hospitalization)
  Sender: FDA-Public Use
  Company Number: PL-ROCHE-719455

PATIENT
  Age: 51 Year
  Sex: Male

DRUGS (9)
  1. SAQUINAVIR [Suspect]
     Indication: HIV INFECTION
     Route: 065
  2. NELFINAVIR [Suspect]
     Indication: HIV INFECTION
     Route: 065
  3. AZIDOTHYMIDINE [Suspect]
     Indication: HIV INFECTION
     Route: 065
  4. LAMIVUDINE (EPIVIR HBV) [Suspect]
     Indication: HIV INFECTION
     Route: 065
  5. D4T [Suspect]
     Indication: HIV INFECTION
     Route: 065
  6. EFAVIRENZ [Suspect]
     Indication: HIV INFECTION
     Route: 065
  7. LOPINAVIR [Suspect]
     Indication: HIV INFECTION
     Route: 065
  8. RITONAVIR [Suspect]
     Indication: HIV INFECTION
     Route: 065
  9. FOSAMPRENAVIR [Suspect]
     Indication: HIV INFECTION
     Route: 065

REACTIONS (1)
  - LUNG NEOPLASM MALIGNANT [None]
